FAERS Safety Report 8107131-3 (Version None)
Quarter: 2012Q1

REPORT INFORMATION
  Report Type: 
  Country: None (occurrence: None)
  Receive Date: 20120202
  Receipt Date: 20120131
  Transmission Date: 20120608
  Serious: Yes (Life-Threatening)
  Sender: FDA-Public Use
  Company Number: AU-B.I. PHARMACEUTICALS,INC./RIDGEFIELD-2011-AU-01843AU

PATIENT
  Sex: Female
  Weight: 70 kg

DRUGS (10)
  1. PRADAXA [Suspect]
     Indication: ATRIAL FIBRILLATION
     Dosage: 220 MG
     Dates: start: 20110610, end: 20111111
  2. CELESTONE M [Concomitant]
     Dosage: 0.02% TWICE DAILY
  3. METOPROLOL [Concomitant]
     Dosage: 100 MG
  4. JANUVIA [Concomitant]
     Indication: DIABETES MELLITUS
     Dosage: 50 MG
  5. PANTOPRAZOLE [Concomitant]
     Dosage: 40 MG
  6. UREX [Concomitant]
     Dosage: 40 MG
  7. CELLUVISC [Concomitant]
     Dosage: 1% TO BOTH EYES
  8. PANADOL OSTEO [Concomitant]
     Dosage: 2660 MG
  9. SLOW-K [Concomitant]
     Dosage: 600 MG
  10. LIPITOR [Concomitant]
     Dosage: 80 MG

REACTIONS (5)
  - CHEST PAIN [None]
  - TACHYCARDIA [None]
  - DEEP VEIN THROMBOSIS [None]
  - BLOOD PRESSURE INCREASED [None]
  - EAR HAEMORRHAGE [None]
